FAERS Safety Report 7892223-4 (Version None)
Quarter: 2011Q4

REPORT INFORMATION
  Report Type: 
  Country: None (occurrence: None)
  Receive Date: 20111104
  Receipt Date: 20111026
  Transmission Date: 20120403
  Serious: Yes (Hospitalization)
  Sender: FDA-Public Use
  Company Number: US-BIOGENIDEC-2011BI024250

PATIENT
  Age: 37 Year
  Sex: Female

DRUGS (24)
  1. TRILEPTAL [Concomitant]
     Route: 048
  2. PROAIR HFA [Concomitant]
     Route: 055
  3. LYRICA [Concomitant]
     Route: 048
  4. RITALIN [Concomitant]
     Route: 048
  5. SOMA [Concomitant]
     Route: 048
  6. SERTRALINE HYDROCHLORIDE [Concomitant]
     Route: 048
  7. LEVOTHROID [Concomitant]
     Route: 048
  8. MEGACE [Concomitant]
     Route: 048
  9. DETROL [Concomitant]
     Route: 048
  10. NAMENDA [Concomitant]
  11. ALLEGRA D 24 HOUR [Concomitant]
     Route: 048
  12. ADVAIR DISKUS 100/50 [Concomitant]
     Route: 055
  13. CHROMAGEN FORTE [Concomitant]
     Route: 048
  14. XANAX [Concomitant]
     Route: 048
  15. MORPHINE SULFATE [Concomitant]
     Route: 048
  16. NEXIUM [Concomitant]
     Route: 048
  17. PERCOCET [Concomitant]
     Route: 048
  18. TRIAMCINOLONE ACETONIDE [Concomitant]
     Route: 061
  19. TYSABRI [Suspect]
     Route: 042
     Dates: start: 20080417, end: 20090820
  20. LIDODERM [Concomitant]
  21. IRON [Concomitant]
     Route: 048
  22. NAMENDA [Concomitant]
     Route: 048
  23. TYSABRI [Suspect]
     Indication: MULTIPLE SCLEROSIS
     Route: 042
     Dates: start: 20100330
  24. TRIMETHOBENZAMIDE HCL [Concomitant]
     Route: 048

REACTIONS (14)
  - RESPIRATORY FAILURE [None]
  - HYPOVITAMINOSIS [None]
  - FLUID INTAKE REDUCED [None]
  - APHAGIA [None]
  - ANAEMIA [None]
  - SEPSIS [None]
  - BLOOD ELECTROLYTES DECREASED [None]
  - FATIGUE [None]
  - KIDNEY INFECTION [None]
  - ASTHENIA [None]
  - PAIN [None]
  - LUNG INFECTION [None]
  - ARTHRALGIA [None]
  - RENAL FAILURE ACUTE [None]
